FAERS Safety Report 9217835 (Version 2)
Quarter: 2013Q2

REPORT INFORMATION
  Report Type: Report from Study
  Country: TR (occurrence: TR)
  Receive Date: 20130408
  Receipt Date: 20130419
  Transmission Date: 20140414
  Serious: Yes (Death, Hospitalization)
  Sender: FDA-Public Use
  Company Number: PHHY2013TR032947

PATIENT
  Age: 7 Year
  Sex: Female

DRUGS (1)
  1. EXJADE [Suspect]
     Indication: SERUM FERRITIN INCREASED
     Dosage: 250 MG, DAILY
     Route: 048
     Dates: start: 2009, end: 20130330

REACTIONS (5)
  - Death [Fatal]
  - Terminal state [Unknown]
  - Osteopetrosis [Unknown]
  - Concomitant disease progression [Unknown]
  - Dysphagia [Unknown]
